FAERS Safety Report 10944487 (Version 2)
Quarter: 2015Q1

REPORT INFORMATION
  Report Type: Spontaneous
  Country: US (occurrence: US)
  Receive Date: 20150323
  Receipt Date: 20150327
  Transmission Date: 20150721
  Serious: Yes (Hospitalization, Disabling, Other)
  Sender: FDA-Public Use
  Company Number: US-UCBSA-2015008680

PATIENT
  Sex: Male
  Weight: 79 kg

DRUGS (6)
  1. CIMZIA [Suspect]
     Active Substance: CERTOLIZUMAB PEGOL
     Indication: CROHN^S DISEASE
     Dosage: 400 MG, EV 4 WEEKS
     Route: 058
  2. CYMBALTA [Concomitant]
     Active Substance: DULOXETINE HYDROCHLORIDE
     Indication: ARTHRITIS
     Dosage: 6 MG, ONCE DAILY (QD)
     Route: 048
  3. FLAGYL [Concomitant]
     Active Substance: METRONIDAZOLE\METRONIDAZOLE HYDROCHLORIDE
     Indication: ANAL FISTULA
     Dosage: UNK
     Dates: end: 2012
  4. PREDNISONE. [Concomitant]
     Active Substance: PREDNISONE
     Indication: ANAL FISTULA
     Dosage: UNK
     Dates: end: 2012
  5. PREDNISONE. [Concomitant]
     Active Substance: PREDNISONE
     Dosage: 5 MG, ONCE DAILY (QD)
     Route: 048
  6. VITAMIN B12 [Concomitant]
     Active Substance: CYANOCOBALAMIN
     Indication: SUPPLEMENTATION THERAPY
     Dosage: UNK, EV 2 WEEKS(QOW)

REACTIONS (5)
  - Bedridden [Recovered/Resolved]
  - Adrenal disorder [Recovered/Resolved]
  - Drug dependence [Unknown]
  - Pancreatitis relapsing [Recovered/Resolved]
  - Weight decreased [Recovered/Resolved]

NARRATIVE: CASE EVENT DATE: 2011
